FAERS Safety Report 24323389 (Version 2)
Quarter: 2024Q3

REPORT INFORMATION
  Report Type: Spontaneous
  Country: CN (occurrence: CN)
  Receive Date: 20240916
  Receipt Date: 20240923
  Transmission Date: 20241017
  Serious: Yes (Other)
  Sender: PFIZER
  Company Number: CN-PFIZER INC-PV202400120062

PATIENT
  Age: 69 Year
  Sex: Female
  Weight: 47 kg

DRUGS (4)
  1. AROMASIN [Suspect]
     Active Substance: EXEMESTANE
     Indication: Breast cancer
     Dosage: 1 DF, 1X/DAY
     Route: 048
     Dates: start: 20240509, end: 20240903
  2. EPIRUBICIN [Suspect]
     Active Substance: EPIRUBICIN
     Indication: Breast cancer
     Dosage: 130 MG, 1X/DAY
     Route: 041
     Dates: start: 20240508, end: 20240508
  3. CYCLOPHOSPHAMIDE [Suspect]
     Active Substance: CYCLOPHOSPHAMIDE
     Indication: Breast cancer
     Dosage: 0.85 G, 1X/DAY
     Route: 041
     Dates: start: 20240508, end: 20240508
  4. SODIUM CHLORIDE [Concomitant]
     Active Substance: SODIUM CHLORIDE
     Dosage: 0.9 % 100 ML (IVGTT)
     Route: 042

REACTIONS (1)
  - Hepatic function abnormal [Recovering/Resolving]

NARRATIVE: CASE EVENT DATE: 20240621
